FAERS Safety Report 6805641-X (Version None)
Quarter: 2010Q2

REPORT INFORMATION
  Report Type: 
  Country: None (occurrence: None)
  Receive Date: 20100628
  Receipt Date: 20080201
  Transmission Date: 20101027
  Serious: Yes (Other)
  Sender: FDA-Public Use
  Company Number: US-PFIZER INC-2007106626

PATIENT
  Sex: Female
  Weight: 81.6 kg

DRUGS (2)
  1. GEODON [Suspect]
  2. PROZAC [Suspect]

REACTIONS (1)
  - TRISMUS [None]
